FAERS Safety Report 15566934 (Version 1)
Quarter: 2018Q4

REPORT INFORMATION
  Report Type: Spontaneous
  Country: PT (occurrence: PT)
  Receive Date: 20181030
  Receipt Date: 20181030
  Transmission Date: 20190205
  Serious: Yes (Other)
  Sender: FDA-Public Use
  Company Number: PT-ELI_LILLY_AND_COMPANY-PT201810009631

PATIENT
  Age: 48 Year
  Sex: Female

DRUGS (3)
  1. TRULICITY [Suspect]
     Active Substance: DULAGLUTIDE
     Indication: TYPE 2 DIABETES MELLITUS
     Dosage: 1.5 MG, WEEKLY (1/W)
     Route: 065
     Dates: start: 20181002
  2. ETORICOXIB. [Concomitant]
     Active Substance: ETORICOXIB
     Indication: EPICONDYLITIS
     Dosage: 90 MG, DAILY
  3. GLICLAZIDE [Concomitant]
     Active Substance: GLICLAZIDE
     Indication: DIABETES MELLITUS
     Dosage: 3 MG, TID

REACTIONS (2)
  - Renal disorder [Unknown]
  - Bladder pain [Unknown]

NARRATIVE: CASE EVENT DATE: 20181002
